FAERS Safety Report 10034623 (Version 2)
Quarter: 2014Q2

REPORT INFORMATION
  Report Type: Spontaneous
  Country: US (occurrence: US)
  Receive Date: 20140325
  Receipt Date: 20140401
  Transmission Date: 20141212
  Serious: Yes (Other)
  Sender: FDA-Public Use
  Company Number: US-GLENMARK GENERICS INC.-2014GMK009003

PATIENT
  Age: 73 Year
  Sex: Female

DRUGS (3)
  1. HYDRALAZINE HCL [Suspect]
     Indication: PRODUCT USED FOR UNKNOWN INDICATION
     Dosage: 50 MG, TID
  2. CARVEDILOL [Concomitant]
     Indication: PRODUCT USED FOR UNKNOWN INDICATION
     Dosage: 6.25 MG, BID
  3. LEVOTHYROXINE [Concomitant]
     Indication: PRODUCT USED FOR UNKNOWN INDICATION
     Dosage: 50 ?G, OD

REACTIONS (14)
  - Glomerulonephritis [Unknown]
  - Autoantibody positive [Not Recovered/Not Resolved]
  - Urinary sediment present [Unknown]
  - Antineutrophil cytoplasmic antibody positive [Not Recovered/Not Resolved]
  - Protein urine present [Unknown]
  - Blood creatinine increased [Recovering/Resolving]
  - Renal failure acute [Unknown]
  - Blood urine present [Unknown]
  - Anaemia of chronic disease [Not Recovered/Not Resolved]
  - Fatigue [Unknown]
  - Pallor [Unknown]
  - Weight decreased [Unknown]
  - Arthralgia [Unknown]
  - Dyspnoea [Unknown]
